FAERS Safety Report 16075303 (Version 1)
Quarter: 2019Q1

REPORT INFORMATION
  Report Type: Spontaneous
  Country: BR (occurrence: BR)
  Receive Date: 20190315
  Receipt Date: 20190315
  Transmission Date: 20190418
  Serious: Yes (Other)
  Sender: FDA-Public Use
  Company Number: BR-ABBVIE-19K-020-2700720-00

PATIENT
  Age: 52 Year
  Sex: Male
  Weight: 85 kg

DRUGS (1)
  1. HUMIRA [Suspect]
     Active Substance: ADALIMUMAB
     Indication: ANKYLOSING SPONDYLITIS
     Route: 058
     Dates: start: 201703

REACTIONS (10)
  - Hypertension [Unknown]
  - Loose tooth [Recovered/Resolved]
  - Arthralgia [Unknown]
  - Zika virus infection [Unknown]
  - Pain in extremity [Recovered/Resolved]
  - Heart rate increased [Recovered/Resolved]
  - Weight decreased [Unknown]
  - Cough [Unknown]
  - Musculoskeletal stiffness [Unknown]
  - Arthralgia [Unknown]

NARRATIVE: CASE EVENT DATE: 201809
